FAERS Safety Report 6598692-4 (Version None)
Quarter: 2010Q1

REPORT INFORMATION
  Report Type: 
  Country: None (occurrence: None)
  Receive Date: 20100224
  Receipt Date: 20100105
  Transmission Date: 20100710
  Serious: Yes (Death)
  Sender: FDA-Public Use
  Company Number: US-TYCO HEALTHCARE/MALLINCKRODT-T201000467

PATIENT
  Age: 44 Year
  Sex: Female

DRUGS (8)
  1. FLUOXETINE [Suspect]
     Route: 048
  2. TRICYCLIC ANTIDEPRESSANTS [Suspect]
     Route: 048
  3. DULOXETINE HYDROCHLORIDE [Suspect]
     Route: 048
  4. TRAZODONE [Suspect]
     Route: 048
  5. OXYBUTYNIN [Suspect]
     Route: 048
  6. METOCLOPRAMIDE HYDROCHLORIDE [Suspect]
     Route: 048
  7. BENZODIAZEPINE [Suspect]
     Route: 048
  8. ETHANOL [Suspect]
     Route: 048

REACTIONS (2)
  - CARDIO-RESPIRATORY ARREST [None]
  - COMPLETED SUICIDE [None]
